FAERS Safety Report 7747414-X (Version None)
Quarter: 2011Q3

REPORT INFORMATION
  Report Type: 
  Country: None (occurrence: None)
  Receive Date: 20110913
  Receipt Date: 20110830
  Transmission Date: 20111222
  Serious: Yes (Hospitalization)
  Sender: FDA-Public Use
  Company Number: FR-GLAXOSMITHKLINE-B0743126A

PATIENT
  Sex: Male

DRUGS (8)
  1. ISONIAZID [Suspect]
     Indication: PULMONARY TUBERCULOSIS
     Route: 048
     Dates: start: 20110601
  2. ATOVAQUONE [Suspect]
     Indication: PULMONARY TUBERCULOSIS
     Route: 048
     Dates: start: 20110526, end: 20110530
  3. RIFAMPICIN [Concomitant]
     Indication: PULMONARY TUBERCULOSIS
     Dosage: 10MGK PER DAY
     Dates: start: 20110601
  4. KALETRA [Concomitant]
     Indication: HIV INFECTION
     Dates: start: 20110420
  5. PYRAZINAMIDE [Suspect]
     Indication: PULMONARY TUBERCULOSIS
     Route: 048
     Dates: start: 20110601, end: 20110601
  6. TRUVADA [Concomitant]
     Indication: HIV INFECTION
     Dates: start: 20100420
  7. ETHAMBUTOL HYDROCHLORIDE [Suspect]
     Indication: PULMONARY TUBERCULOSIS
     Route: 048
     Dates: start: 20110601
  8. LEVOFLOXACIN [Concomitant]
     Indication: PULMONARY TUBERCULOSIS
     Dates: start: 20100419, end: 20100423

REACTIONS (2)
  - HEPATIC ENZYME INCREASED [None]
  - THROMBOCYTOPENIA [None]
